FAERS Safety Report 7378723-4 (Version None)
Quarter: 2011Q1

REPORT INFORMATION
  Report Type: 
  Country: None (occurrence: None)
  Receive Date: 20110328
  Receipt Date: 20110302
  Transmission Date: 20110831
  Serious: No
  Sender: FDA-Public Use
  Company Number: US-B.I. PHARMACEUTICALS,INC./RIDGEFIELD-2011-BP-02185BP

PATIENT
  Age: 72 Year
  Sex: Male

DRUGS (17)
  1. PRADAXA [Suspect]
     Indication: ATRIAL FIBRILLATION
     Dosage: 300 MG
     Route: 048
     Dates: start: 20110118
  2. FLUTICASONE PROPIONATE [Concomitant]
  3. NIASPAN [Concomitant]
  4. SIMVASTATIN [Concomitant]
  5. LISINOPRIL [Concomitant]
  6. FUROSEMIDE [Suspect]
     Indication: CARDIAC FAILURE CONGESTIVE
  7. NAPROXEN [Concomitant]
  8. RANITIDINE [Concomitant]
  9. POTASSIUM CHLORIDE [Suspect]
     Indication: CARDIAC FAILURE CONGESTIVE
  10. METFORMIN [Concomitant]
  11. TERAZOSIN [Concomitant]
  12. PRADAXA [Suspect]
     Indication: CARDIAC FAILURE CONGESTIVE
  13. PLAVIX [Concomitant]
  14. CARVEDILOL [Concomitant]
  15. INSULIN [Concomitant]
  16. POTASSIUM CHLORIDE [Concomitant]
  17. FUROSEMIDE [Concomitant]

REACTIONS (7)
  - ABDOMINAL PAIN UPPER [None]
  - ABDOMINAL DISCOMFORT [None]
  - DIARRHOEA [None]
  - CONDITION AGGRAVATED [None]
  - INSOMNIA [None]
  - NAUSEA [None]
  - DYSPNOEA [None]
